FAERS Safety Report 16351640 (Version 1)
Quarter: 2019Q2

REPORT INFORMATION
  Report Type: Spontaneous
  Country: JP (occurrence: JP)
  Receive Date: 20190524
  Receipt Date: 20190524
  Transmission Date: 20190711
  Serious: Yes (Hospitalization)
  Sender: FDA-Public Use
  Company Number: JP-ORION CORPORATION ORION PHARMA-ENT 2019-0030

PATIENT
  Age: 87 Year
  Sex: Female

DRUGS (3)
  1. COMTAN [Suspect]
     Active Substance: ENTACAPONE
     Indication: PARKINSON^S DISEASE
     Route: 048
  2. COMTAN [Suspect]
     Active Substance: ENTACAPONE
     Route: 048
  3. E C DOPAL [Concomitant]
     Route: 065

REACTIONS (1)
  - Parkinson^s disease [Unknown]
